FAERS Safety Report 9585639 (Version 1)
Quarter: 2013Q4

REPORT INFORMATION
  Report Type: Spontaneous
  Country: US (occurrence: US)
  Receive Date: 20131003
  Receipt Date: 20131003
  Transmission Date: 20140711
  Serious: No
  Sender: FDA-Public Use
  Company Number: US-BIOGENIDEC-2013BI094387

PATIENT
  Age: 60 Year
  Sex: Male

DRUGS (7)
  1. TYSABRI [Suspect]
     Indication: MULTIPLE SCLEROSIS
     Route: 042
     Dates: start: 20130318
  2. INSULIN (NOS) [Concomitant]
  3. LISINOPRIL [Concomitant]
  4. BACLOFEN [Concomitant]
  5. ASA [Concomitant]
  6. ATORVASTATIN [Concomitant]
  7. VITAMIN D [Concomitant]

REACTIONS (4)
  - Hypoaesthesia [Recovered/Resolved]
  - Joint swelling [Recovered/Resolved]
  - Vision blurred [Recovered/Resolved]
  - Stress [Not Recovered/Not Resolved]
